FAERS Safety Report 21245360 (Version 13)
Quarter: 2024Q1

REPORT INFORMATION
  Report Type: Spontaneous
  Country: CA (occurrence: CA)
  Receive Date: 20220823
  Receipt Date: 20240116
  Transmission Date: 20240409
  Serious: Yes (Other)
  Sender: FDA-Public Use
  Company Number: CA-CELLTRION INC.-2022CA012396

PATIENT

DRUGS (19)
  1. INFLECTRA [Suspect]
     Active Substance: INFLIXIMAB-DYYB
     Indication: Crohn^s disease
     Dosage: 5 MG/KG, EVERY 8 WEEKS
     Route: 042
     Dates: start: 20220809
  2. INFLECTRA [Suspect]
     Active Substance: INFLIXIMAB-DYYB
     Dosage: 5 MG/KG, AT 0, 2, 6 WEEK, THEN EVERY 8 WEEKS; ROUNDED TO NEAREST VIAL
     Route: 042
     Dates: start: 20220809, end: 20230627
  3. INFLECTRA [Suspect]
     Active Substance: INFLIXIMAB-DYYB
     Dosage: 344 MG
     Route: 042
     Dates: start: 20220823
  4. INFLECTRA [Suspect]
     Active Substance: INFLIXIMAB-DYYB
     Dosage: 5 MG/KG, AT 0, 2, 6 WEEK, THEN EVERY 8 WEEKS; ROUNDED TO NEAREST VIAL
     Route: 042
     Dates: start: 20220920
  5. INFLECTRA [Suspect]
     Active Substance: INFLIXIMAB-DYYB
     Dosage: 400 MG 0, 2, 6 WEEK, THEN EVERY 8 WEEKS; ROUND TO NEAREST VIAL
     Route: 042
     Dates: start: 20221115, end: 20221115
  6. INFLECTRA [Suspect]
     Active Substance: INFLIXIMAB-DYYB
     Dosage: 5MG/KG, EVERY 8 WEEKS
     Route: 042
     Dates: start: 20230502
  7. INFLECTRA [Suspect]
     Active Substance: INFLIXIMAB-DYYB
     Dosage: 5MG/KG, EVERY 6 WEEKS
     Route: 042
     Dates: start: 20230627
  8. INFLECTRA [Suspect]
     Active Substance: INFLIXIMAB-DYYB
     Dosage: 5MG/KG, EVERY 6 WEEKS
     Route: 042
     Dates: start: 20230627
  9. INFLECTRA [Suspect]
     Active Substance: INFLIXIMAB-DYYB
     Dosage: 5MG/KG, EVERY 6 WEEKS
     Route: 042
     Dates: start: 20230627
  10. INFLECTRA [Suspect]
     Active Substance: INFLIXIMAB-DYYB
     Dosage: 358 MG (5MG/KG), EVERY 6 WEEKS
     Route: 042
     Dates: start: 20230808
  11. INFLECTRA [Suspect]
     Active Substance: INFLIXIMAB-DYYB
     Dosage: 358 MG (5MG/KG), EVERY 6 WEEKS
     Route: 042
     Dates: start: 20230808
  12. INFLECTRA [Suspect]
     Active Substance: INFLIXIMAB-DYYB
     Dosage: 538 MG, EVERY 6 WEEKS (SUPPOSE TO RECEIVE 5MG/KG)
     Route: 042
     Dates: start: 20230919
  13. INFLECTRA [Suspect]
     Active Substance: INFLIXIMAB-DYYB
     Dosage: 538 MG, EVERY 6 WEEKS (SUPPOSE TO RECEIVE 5MG/KG)
     Route: 042
     Dates: start: 20230919
  14. INFLECTRA [Suspect]
     Active Substance: INFLIXIMAB-DYYB
     Dosage: 5 MG/KG (355.5 MG), EVERY 6 WEEKS
     Route: 042
     Dates: start: 20231031
  15. INFLECTRA [Suspect]
     Active Substance: INFLIXIMAB-DYYB
     Dosage: 5 MG/KG (355.5 MG), EVERY 6 WEEKS
     Route: 042
     Dates: start: 20231031
  16. INFLECTRA [Suspect]
     Active Substance: INFLIXIMAB-DYYB
     Dosage: 361 MG, EVERY 6 WEEKS (SUPPOSED TO RECEIVE 5 MG/KG ROUNDED TO THE NEAREST HUNDRED)
     Route: 042
     Dates: start: 20231215
  17. IMURAN [Concomitant]
     Active Substance: AZATHIOPRINE
     Dosage: 1 DF, DOSAGE INFORMATION NOT AVAILABLE
     Route: 065
     Dates: start: 2012
  18. PREDNISONE [Concomitant]
     Active Substance: PREDNISONE
     Dosage: 1 DF, DOSAGE INFORMATION NOT AVAILABLE
     Route: 065
     Dates: start: 202205
  19. CHOLECALCIFEROL [Concomitant]
     Active Substance: CHOLECALCIFEROL
     Dosage: 1 DF, DOSAGE INFORMATION NOT AVAILABLE
     Route: 065

REACTIONS (14)
  - Blood pressure diastolic decreased [Unknown]
  - Therapeutic response shortened [Not Recovered/Not Resolved]
  - Drug specific antibody present [Unknown]
  - Heart rate decreased [Not Recovered/Not Resolved]
  - Pallor [Recovering/Resolving]
  - Hyperhidrosis [Recovering/Resolving]
  - Migraine [Unknown]
  - Condition aggravated [Not Recovered/Not Resolved]
  - Headache [Not Recovered/Not Resolved]
  - Off label use [Unknown]
  - Off label use [Unknown]
  - Intentional product use issue [Unknown]
  - Incorrect dose administered [Unknown]
  - Inappropriate schedule of product administration [Unknown]

NARRATIVE: CASE EVENT DATE: 20220809
